FAERS Safety Report 8057627-8 (Version None)
Quarter: 2012Q1

REPORT INFORMATION
  Report Type: 
  Country: None (occurrence: None)
  Receive Date: 20120120
  Receipt Date: 20120110
  Transmission Date: 20120608
  Serious: No
  Sender: FDA-Public Use
  Company Number: US-BIOGENIDEC-2011BI033030

PATIENT
  Sex: Female

DRUGS (6)
  1. BETASERON [Concomitant]
     Indication: MULTIPLE SCLEROSIS
  2. COPAXONE [Concomitant]
     Indication: MULTIPLE SCLEROSIS
  3. TYSABRI [Suspect]
     Indication: MULTIPLE SCLEROSIS
     Route: 042
     Dates: start: 20110822
  4. ZOMIG [Concomitant]
     Indication: CLUSTER HEADACHE
     Dates: start: 20040101
  5. ZOMIG [Concomitant]
     Indication: HEADACHE
     Dates: start: 20040101
  6. INTERFERONS (NOS) [Concomitant]

REACTIONS (11)
  - FEELING COLD [None]
  - HEADACHE [None]
  - FATIGUE [None]
  - NECK PAIN [None]
  - GAIT DISTURBANCE [None]
  - UPPER EXTREMITY MASS [None]
  - POOR VENOUS ACCESS [None]
  - INFUSION SITE PAIN [None]
  - VISUAL IMPAIRMENT [None]
  - INFUSION SITE HAEMATOMA [None]
  - CLUSTER HEADACHE [None]
